FAERS Safety Report 6248613-9 (Version None)
Quarter: 2009Q2

REPORT INFORMATION
  Report Type: 
  Country: None (occurrence: None)
  Receive Date: 20090624
  Receipt Date: 20090624
  Transmission Date: 20091009
  Serious: Yes (Hospitalization)
  Sender: FDA-Public Use
  Company Number: None

PATIENT
  Age: 59 Year
  Sex: Male
  Weight: 89 kg

DRUGS (17)
  1. QUETIAPINE FUMARATE [Suspect]
     Dosage: 50MG PO
     Route: 048
     Dates: start: 20090417, end: 20090419
  2. APAP TAB [Concomitant]
  3. DIPHENHYDRAMINE HCL [Concomitant]
  4. HALOPERIDOL [Concomitant]
  5. INSULIN ASPART [Concomitant]
  6. LANSOPRAZOLE [Concomitant]
  7. ACYCLOVIR [Concomitant]
  8. METOPROLOL [Concomitant]
  9. MULTI-VITAMIN [Concomitant]
  10. MYCOPHENOLATE MOFETIL [Concomitant]
  11. TACROLIMUS [Concomitant]
  12. NYSTATIN/ZINC/HYDROCORTISONE [Concomitant]
  13. OXYCODONE HCL AND ACETAMINOPHEN [Concomitant]
  14. PREDNISONE [Concomitant]
  15. TRYPSIN BALSAM [Concomitant]
  16. TRIMETHOPRIM + SULFAMETHOXAZOLE [Concomitant]
  17. VANCOMYCIN [Concomitant]

REACTIONS (2)
  - CONFUSIONAL STATE [None]
  - RESPIRATORY DISTRESS [None]
